FAERS Safety Report 25699499 (Version 2)
Quarter: 2025Q3

REPORT INFORMATION
  Report Type: Spontaneous
  Country: US (occurrence: US)
  Receive Date: 20250819
  Receipt Date: 20250829
  Transmission Date: 20251020
  Serious: No
  Sender: Vantive US Healthcare
  Company Number: US-VANTIVE-2025VAN003799

PATIENT
  Sex: Female

DRUGS (1)
  1. DIANEAL LOW CALCIUM PERITONEAL DIALYSIS SOLUTION WITH DEXTROSE [Suspect]
     Active Substance: CALCIUM CHLORIDE\DEXTROSE\MAGNESIUM CHLORIDE\SODIUM CHLORIDE\SODIUM LACTATE
     Route: 033

REACTIONS (6)
  - Oedema peripheral [Unknown]
  - Proctalgia [Unknown]
  - Peritoneal dialysis complication [Unknown]
  - Product availability issue [Unknown]
  - Abdominal discomfort [Unknown]
  - Procedural pain [Unknown]
